FAERS Safety Report 4485418-3 (Version None)
Quarter: 2004Q4

REPORT INFORMATION
  Report Type: 
  Country: None (occurrence: None)
  Receive Date: 20041025
  Receipt Date: 20041025
  Transmission Date: 20050328
  Serious: Yes (Other)
  Sender: FDA-Public Use
  Company Number: None

PATIENT
  Sex: Female
  Weight: 58.9676 kg

DRUGS (1)
  1. ZANTAC GENERIC 150 [Suspect]
     Indication: GASTROOESOPHAGEAL REFLUX DISEASE
     Dosage: PO BID
     Route: 048

REACTIONS (3)
  - BLISTER [None]
  - PHARMACEUTICAL PRODUCT COMPLAINT [None]
  - RASH [None]
